FAERS Safety Report 7247289-1 (Version None)
Quarter: 2011Q1

REPORT INFORMATION
  Report Type: 
  Country: None (occurrence: None)
  Receive Date: 20110127
  Receipt Date: 20110119
  Transmission Date: 20110831
  Serious: Yes (Other)
  Sender: FDA-Public Use
  Company Number: A0908701A

PATIENT
  Sex: Female

DRUGS (1)
  1. PAXIL [Suspect]
     Route: 048
     Dates: start: 19960101, end: 19970101

REACTIONS (4)
  - BIPOLAR DISORDER [None]
  - PSYCHOMOTOR HYPERACTIVITY [None]
  - OBSESSIVE-COMPULSIVE DISORDER [None]
  - MANIA [None]
